FAERS Safety Report 8581751-4 (Version None)
Quarter: 2012Q3

REPORT INFORMATION
  Report Type: 
  Country: None (occurrence: None)
  Receive Date: 20120809
  Receipt Date: 20120730
  Transmission Date: 20120928
  Serious: Yes (Other)
  Sender: FDA-Public Use
  Company Number: JP-VERTEX PHARMACEUTICALS INC.-AE-2012-009481

PATIENT
  Age: 69 Year
  Sex: Male

DRUGS (10)
  1. PEG-INTRON [Concomitant]
     Route: 058
     Dates: start: 20120712
  2. JUZENTAIHOTO [Concomitant]
     Route: 048
     Dates: start: 20120611
  3. PREDNISOLONE [Concomitant]
     Route: 048
     Dates: start: 20120615, end: 20120624
  4. PREDNISOLONE [Concomitant]
     Route: 048
     Dates: start: 20120702, end: 20120717
  5. PREDNISOLONE [Concomitant]
     Route: 048
     Dates: start: 20120718
  6. PREDNISOLONE [Concomitant]
     Route: 048
     Dates: start: 20120625, end: 20120701
  7. TELAVIC (TELAPREVIR) [Suspect]
     Indication: HEPATITIS C
     Route: 048
     Dates: start: 20120611
  8. PEG-INTRON [Concomitant]
     Indication: HEPATITIS C
     Route: 058
     Dates: start: 20120611, end: 20120711
  9. REBETOL [Concomitant]
     Indication: HEPATITIS C
     Route: 048
     Dates: start: 20120611, end: 20120717
  10. REBETOL [Concomitant]
     Route: 048
     Dates: start: 20120718

REACTIONS (2)
  - ERYTHEMA [None]
  - NEUTROPHIL COUNT DECREASED [None]
